FAERS Safety Report 23202298 (Version 1)
Quarter: 2023Q4

REPORT INFORMATION
  Report Type: Spontaneous
  Country: SE (occurrence: SE)
  Receive Date: 20231120
  Receipt Date: 20231120
  Transmission Date: 20240109
  Serious: Yes (Life-Threatening, Disabling)
  Sender: FDA-Public Use
  Company Number: None

PATIENT
  Sex: Female

DRUGS (2)
  1. OLANZAPINE PAMOATE [Suspect]
     Active Substance: OLANZAPINE PAMOATE
     Indication: Product used for unknown indication
     Dosage: LONG ACTING INTRAMUSCULAR
  2. PERPHENAZINE DECANOATE [Concomitant]
     Active Substance: PERPHENAZINE DECANOATE
     Indication: Product used for unknown indication

REACTIONS (2)
  - Feeling hot [Unknown]
  - Thrombosis [Unknown]
